FAERS Safety Report 9194124 (Version 1)
Quarter: 2013Q1

REPORT INFORMATION
  Report Type: Other
  Country: GB (occurrence: GB)
  Receive Date: 20130327
  Receipt Date: 20130327
  Transmission Date: 20140127
  Serious: Yes (Other)
  Sender: FDA-Public Use
  Company Number: GB-WATSON-2013-05209

PATIENT
  Age: 30 Year
  Sex: Male

DRUGS (10)
  1. TRAMADOL HYDROCHLORIDE (UNKNOWN) [Suspect]
     Indication: ANALGESIC THERAPY
     Dosage: AS REQUIRED
     Route: 048
     Dates: start: 19950101, end: 20130201
  2. NUROFEN [Suspect]
     Indication: ANALGESIC THERAPY
     Dosage: AS REQUIRED
     Route: 048
     Dates: start: 19950101, end: 20130201
  3. ASPIRIN [Suspect]
     Indication: ANALGESIC THERAPY
     Dosage: AS REQUIRED
     Route: 048
     Dates: start: 19950101, end: 20130201
  4. SOLPADEINE [Suspect]
     Indication: ANALGESIC THERAPY
     Dosage: AS REQUIRED
     Route: 048
     Dates: start: 19950101, end: 20130201
  5. CO-DYDRAMOL [Suspect]
     Indication: ANALGESIC THERAPY
     Dosage: AS REQUIRED
     Route: 048
     Dates: start: 19950101, end: 20130201
  6. DIHYDROCODEINE [Suspect]
     Indication: ANALGESIC THERAPY
     Dosage: AS REQUIRED
     Route: 048
     Dates: start: 19950101, end: 20130201
  7. CODEINE [Suspect]
     Indication: ANALGESIC THERAPY
     Dosage: AS REQUIRED
     Route: 048
     Dates: end: 20130201
  8. PROPRANOLOL [Concomitant]
     Indication: PRODUCT USED FOR UNKNOWN INDICATION
     Route: 065
  9. SERTRALINE [Concomitant]
     Indication: PRODUCT USED FOR UNKNOWN INDICATION
     Route: 065
  10. INHALERIN [Concomitant]
     Indication: ASTHMA
     Route: 065

REACTIONS (10)
  - Drug dependence [Recovering/Resolving]
  - Abnormal behaviour [Recovering/Resolving]
  - Alcoholism [Recovering/Resolving]
  - Withdrawal syndrome [Recovering/Resolving]
  - Insomnia [Recovering/Resolving]
  - Vomiting [Recovering/Resolving]
  - Mood altered [Recovering/Resolving]
  - Erectile dysfunction [Recovering/Resolving]
  - Ejaculation failure [Recovering/Resolving]
  - Drug abuse [Recovering/Resolving]
